FAERS Safety Report 6000086-7 (Version None)
Quarter: 2008Q4

REPORT INFORMATION
  Report Type: 
  Country: None (occurrence: None)
  Receive Date: 20081215
  Receipt Date: 20081208
  Transmission Date: 20090506
  Serious: Yes (Hospitalization)
  Sender: FDA-Public Use
  Company Number: B0549387A

PATIENT
  Age: 70 Year
  Sex: Male

DRUGS (2)
  1. AVODART [Suspect]
     Indication: BENIGN PROSTATIC HYPERPLASIA
     Dosage: 500MCG PER DAY
     Route: 048
     Dates: start: 20070301, end: 20080606
  2. CANDESARTAN [Concomitant]
     Indication: HYPERTENSION
     Dosage: 8MG PER DAY

REACTIONS (2)
  - INTESTINAL ULCER [None]
  - RECTAL HAEMORRHAGE [None]
